FAERS Safety Report 5188118-X (Version None)
Quarter: 2006Q4

REPORT INFORMATION
  Report Type: 
  Country: None (occurrence: None)
  Receive Date: 20061221
  Receipt Date: 20061212
  Transmission Date: 20070319
  Serious: Yes (Disabling)
  Sender: FDA-Public Use
  Company Number: JP-MERCK-0612USA02711

PATIENT
  Age: 9 Year
  Sex: Female

DRUGS (9)
  1. PEPCID [Suspect]
     Route: 042
     Dates: start: 20061006, end: 20061015
  2. CEFAMEZIN [Suspect]
     Indication: PNEUMONIA
     Route: 041
     Dates: start: 20061006, end: 20061006
  3. DORMICUM (MIDAZOLAM) [Concomitant]
     Route: 042
     Dates: start: 20061006, end: 20061031
  4. FENTANEST [Concomitant]
     Route: 042
     Dates: start: 20061006, end: 20061031
  5. HANP [Concomitant]
     Route: 042
     Dates: start: 20061006, end: 20061015
  6. LASIX [Concomitant]
     Route: 042
     Dates: start: 20061008, end: 20061014
  7. PANTHENOL [Concomitant]
     Route: 065
     Dates: start: 20061009, end: 20061015
  8. SULPERAZON [Concomitant]
     Indication: PNEUMONIA
     Route: 065
     Dates: start: 20061008, end: 20061008
  9. UNASYN [Suspect]
     Indication: PNEUMONIA
     Route: 065
     Dates: start: 20061006, end: 20061006

REACTIONS (1)
  - ACUTE RESPIRATORY DISTRESS SYNDROME [None]
